FAERS Safety Report 9764324 (Version 3)
Quarter: 2014Q1

REPORT INFORMATION
  Report Type: Report from Study
  Country: GB (occurrence: GB)
  Receive Date: 20131217
  Receipt Date: 20140325
  Transmission Date: 20141002
  Serious: Yes (Hospitalization)
  Sender: FDA-Public Use
  Company Number: GB-ROCHE-1264717

PATIENT
  Age: 61 Year
  Sex: Male
  Weight: 242.6 kg

DRUGS (7)
  1. RANIBIZUMAB [Suspect]
     Indication: AGE-RELATED MACULAR DEGENERATION
     Route: 050
     Dates: start: 20090730, end: 20131001
  2. SIMVASTATINE [Concomitant]
     Route: 065
     Dates: start: 20090422
  3. LOSARTAN POTASSIUM [Concomitant]
  4. MELOXICAM [Concomitant]
     Route: 065
     Dates: start: 20100201
  5. ADALAT [Concomitant]
     Route: 065
     Dates: start: 20090509
  6. ASPIRIN [Concomitant]
     Route: 065
     Dates: start: 20091110
  7. OMEPRAZOLE [Concomitant]
     Route: 065
     Dates: start: 20060613

REACTIONS (3)
  - Joint dislocation [Recovered/Resolved]
  - Fall [Unknown]
  - Intermittent claudication [Unknown]
